FAERS Safety Report 4459234-2 (Version None)
Quarter: 2004Q3

REPORT INFORMATION
  Report Type: 
  Country: None (occurrence: None)
  Receive Date: 20040920
  Receipt Date: 20040908
  Transmission Date: 20050211
  Serious: Yes (Other)
  Sender: FDA-Public Use
  Company Number: 200410171BSV

PATIENT
  Age: 72 Year
  Sex: Male

DRUGS (3)
  1. GAMIMUNE N 10% [Suspect]
     Indication: WEGENER'S GRANULOMATOSIS
     Dosage: 100 G, TOTAL DAILY, INTRAVENOUS
     Route: 042
     Dates: start: 20030213, end: 20030428
  2. METHOTREXATE [Concomitant]
  3. PREDNISOLONE [Concomitant]

REACTIONS (1)
  - PULMONARY EMBOLISM [None]
